FAERS Safety Report 8818804 (Version 1)
Quarter: 2012Q4

REPORT INFORMATION
  Report Type: 
  Country: US (occurrence: US)
  Receive Date: 20121001
  Receipt Date: 20121001
  Transmission Date: 20130627
  Serious: No
  Sender: FDA-Public Use
  Company Number: US-ASTRAZENECA-2012SE70463

PATIENT
  Age: 36 Year
  Sex: Female
  Weight: 76.2 kg

DRUGS (5)
  1. SYMBICORT PMDI [Suspect]
     Indication: PERTUSSIS
     Dosage: 160MCG, TWO PUFFS, BID
     Route: 055
     Dates: start: 20120718
  2. LISINOPRIL HCTZ [Interacting]
     Indication: BLOOD PRESSURE ABNORMAL
     Dosage: 40/25NMG DAILY
     Route: 048
  3. DOXAZOSIN [Interacting]
     Route: 048
  4. AMLODIPINE [Interacting]
     Indication: BLOOD PRESSURE ABNORMAL
     Route: 048
  5. CARDEDILOL [Interacting]
     Route: 048

REACTIONS (3)
  - Drug interaction [Unknown]
  - Asthma [Unknown]
  - Off label use [Unknown]
